FAERS Safety Report 23591119 (Version 1)
Quarter: 2024Q1

REPORT INFORMATION
  Report Type: Spontaneous
  Country: DE (occurrence: DE)
  Receive Date: 20240304
  Receipt Date: 20240304
  Transmission Date: 20240409
  Serious: Yes (Hospitalization)
  Sender: FDA-Public Use
  Company Number: DE-ROCHE-2422733

PATIENT
  Age: 50 Year
  Sex: Male
  Weight: 120 kg

DRUGS (10)
  1. BISOPROLOL FUMARATE [Suspect]
     Active Substance: BISOPROLOL FUMARATE
     Indication: Product used for unknown indication
     Dosage: 5MG QD
     Route: 065
  2. DIMETHINDENE [Suspect]
     Active Substance: DIMETHINDENE
     Indication: Product used for unknown indication
     Dosage: RECENT DOSE RECEIVED ON 11/OCT/2019.
     Route: 042
  3. METOPROLOL [Suspect]
     Active Substance: METOPROLOL
     Indication: Product used for unknown indication
     Dosage: 1-0-0
     Route: 065
  4. METOPROLOL [Suspect]
     Active Substance: METOPROLOL
     Dosage: 47.5MG
     Route: 065
  5. METOPROLOL [Suspect]
     Active Substance: METOPROLOL
     Dosage: 0-0-1 AND 1-0-0
     Route: 065
  6. AMLODIPINE [Concomitant]
     Active Substance: AMLODIPINE BESYLATE
     Indication: Product used for unknown indication
     Dosage: 10MG QD
     Route: 065
  7. CANDESARTAN [Concomitant]
     Active Substance: CANDESARTAN
     Indication: Product used for unknown indication
     Dosage: 0.5-0-0
     Route: 065
  8. RAMIPRIL [Concomitant]
     Active Substance: RAMIPRIL
     Indication: Product used for unknown indication
     Dosage: 2-0-1
     Route: 065
  9. RAMIPRIL [Concomitant]
     Active Substance: RAMIPRIL
     Dosage: 1-0-1
     Route: 065
  10. OCREVUS [Interacting]
     Active Substance: OCRELIZUMAB
     Indication: Relapsing-remitting multiple sclerosis
     Dosage: SUBSEQUENT DOSE ON 07/NOV/2022
     Route: 065
     Dates: start: 20190919

REACTIONS (36)
  - Blood pressure increased [Recovered/Resolved]
  - Panic attack [Recovered/Resolved]
  - Skin irritation [Not Recovered/Not Resolved]
  - Burning sensation [Not Recovered/Not Resolved]
  - Pain of skin [Not Recovered/Not Resolved]
  - Gait disturbance [Not Recovered/Not Resolved]
  - Headache [Recovered/Resolved]
  - Hepatomegaly [Not Recovered/Not Resolved]
  - Salivary hypersecretion [Recovering/Resolving]
  - Fall [Unknown]
  - Drug interaction [Unknown]
  - Rash [Recovered/Resolved]
  - Muscular weakness [Recovering/Resolving]
  - Feeling hot [Not Recovered/Not Resolved]
  - Abdominal distension [Recovered/Resolved]
  - Musculoskeletal stiffness [Recovered/Resolved]
  - Abdominal pain upper [Recovered/Resolved]
  - Pruritus [Recovered/Resolved]
  - Fear of disease [Recovered/Resolved]
  - Balance disorder [Recovering/Resolving]
  - Irritability [Recovered/Resolved]
  - Arthralgia [Recovered/Resolved]
  - Claustrophobia [Recovered/Resolved]
  - Tooth disorder [Recovered/Resolved]
  - Urinary incontinence [Recovered/Resolved]
  - Mass [Recovered/Resolved]
  - Extrasystoles [Recovered/Resolved]
  - Lacrimation increased [Recovered/Resolved]
  - Myalgia [Recovered/Resolved]
  - Eructation [Recovered/Resolved]
  - Asthenia [Recovered/Resolved]
  - Inappropriate schedule of product administration [Unknown]
  - Mobility decreased [Recovered/Resolved]
  - Gingival recession [Recovered/Resolved]
  - Hyperhidrosis [Recovered/Resolved]
  - Influenza like illness [Recovered/Resolved]

NARRATIVE: CASE EVENT DATE: 20190919
